FAERS Safety Report 9336556 (Version 2)
Quarter: 2013Q3

REPORT INFORMATION
  Report Type: Spontaneous
  Country: US (occurrence: US)
  Receive Date: 20130607
  Receipt Date: 20130806
  Transmission Date: 20140515
  Serious: No
  Sender: FDA-Public Use
  Company Number: US-PFIZER INC-2013171551

PATIENT
  Sex: Female

DRUGS (5)
  1. DILANTIN-125 [Suspect]
     Dosage: UNK
  2. TETRACYCLINE HCL [Suspect]
     Dosage: UNK
  3. CODEINE [Suspect]
     Dosage: UNK
  4. ZONEGRAN [Suspect]
     Dosage: UNK
  5. TOPAMAX [Suspect]
     Dosage: UNK

REACTIONS (1)
  - Drug hypersensitivity [Unknown]
